FAERS Safety Report 7108879-X (Version None)
Quarter: 2010Q4

REPORT INFORMATION
  Report Type: 
  Country: None (occurrence: None)
  Receive Date: 20101117
  Receipt Date: 20101110
  Transmission Date: 20110411
  Serious: Yes (Other)
  Sender: FDA-Public Use
  Company Number: BR-ABBOTT-10P-020-0673080-00

PATIENT
  Sex: Male
  Weight: 9 kg

DRUGS (12)
  1. DEPAKOTE [Suspect]
     Indication: CONVULSION
     Route: 048
     Dates: start: 20100301
  2. CLOBAZAM [Concomitant]
     Indication: CONVULSION
     Route: 048
  3. MOTILIUM [Concomitant]
     Indication: GASTROOESOPHAGEAL REFLUX DISEASE
     Dosage: 2 IN 24 HOURS, ONLY WHEN HE HAS PAIN
     Route: 048
     Dates: start: 20081001
  4. LABEL [Concomitant]
     Indication: GASTROOESOPHAGEAL REFLUX DISEASE
     Dosage: 2 IN 24 HOURS, ONLY WHEN HE HAS PAIN
     Route: 048
     Dates: start: 20081001
  5. NOVALGINA [Concomitant]
     Indication: PAIN
     Dosage: 2.5ML Q12 HOURS, ONLY WHEN HE HAS PAIN
     Route: 048
     Dates: start: 20091001
  6. NOVALGINA [Concomitant]
  7. SERETIDE [Concomitant]
     Indication: BRONCHOPNEUMONIA
     Dosage: 25/125MCG   25/125MCG; 1 APP Q12 HR WHEN LACK OF AIR
     Route: 048
     Dates: start: 20091001
  8. SERETIDE [Concomitant]
  9. AEROLIN [Concomitant]
     Indication: PROPHYLAXIS
     Dosage: 1 IN 12 HOURS, WHEN HE HAS LACK OF AIR
     Route: 048
     Dates: start: 20091001
  10. AEROLIN [Concomitant]
  11. AZITHROMYCIN [Concomitant]
     Indication: PNEUMONIA
     Dosage: 1 TAB M/W/F
     Route: 048
     Dates: start: 20091001
  12. AZITHROMYCIN [Concomitant]
     Indication: PROPHYLAXIS

REACTIONS (4)
  - CONVULSION [None]
  - DRUG INEFFECTIVE [None]
  - GASTROSTOMY [None]
  - MEDICATION RESIDUE [None]
